FAERS Safety Report 7250441-2 (Version None)
Quarter: 2011Q1

REPORT INFORMATION
  Report Type: 
  Country: None (occurrence: None)
  Receive Date: 20110128
  Receipt Date: 20110118
  Transmission Date: 20110831
  Serious: Yes (Other)
  Sender: FDA-Public Use
  Company Number: CA-WATSON-2011-00870

PATIENT
  Age: 69 Year
  Sex: Female

DRUGS (1)
  1. BUPROPION HCL [Suspect]
     Indication: MAJOR DEPRESSION
     Dosage: 200 MG, DAILY
     Route: 048

REACTIONS (2)
  - SPEECH DISORDER [None]
  - MYOCLONUS [None]
